FAERS Safety Report 7034603-5 (Version None)
Quarter: 2010Q4

REPORT INFORMATION
  Report Type: 
  Country: None (occurrence: None)
  Receive Date: 20101008
  Receipt Date: 20101001
  Transmission Date: 20110411
  Serious: Yes (Other)
  Sender: FDA-Public Use
  Company Number: ES-SANOFI-AVENTIS-2010SA059348

PATIENT
  Age: 84 Year
  Sex: Female

DRUGS (14)
  1. METRONIDAZOLE [Suspect]
     Indication: LUNG INFECTION
  2. METFORMIN HCL [Suspect]
  3. CLAFORAN [Suspect]
     Indication: LUNG INFECTION
  4. IRBESARTAN [Suspect]
  5. AMLODIPINE [Suspect]
  6. CARMEN [Concomitant]
  7. DIAMICRON [Concomitant]
  8. ACETYLSALICYLIC ACID SRT [Concomitant]
  9. CANDESARTAN CILEXETIL [Concomitant]
  10. PANTOPRAZOLE [Concomitant]
  11. TORASEMIDE [Concomitant]
  12. PAROXETINE [Concomitant]
  13. PRAVASTATIN [Concomitant]
  14. CARDURA [Concomitant]

REACTIONS (1)
  - RENAL TUBULAR NECROSIS [None]
